FAERS Safety Report 22108514 (Version 1)
Quarter: 2023Q1

REPORT INFORMATION
  Report Type: Spontaneous
  Country: ES (occurrence: ES)
  Receive Date: 20230317
  Receipt Date: 20230317
  Transmission Date: 20230417
  Serious: Yes (Other)
  Sender: FDA-Public Use
  Company Number: None

PATIENT
  Age: 26 Year
  Sex: Female

DRUGS (7)
  1. FLUTICREM 0.5 mg/g CREMA, 1 tubo de 60 g [Concomitant]
     Indication: Product used for unknown indication
     Dosage: 1 DOSAGE FORMS
     Dates: start: 20221227
  2. ELIDEL 10 mg/g CREMA , 1 tubo de 30 g [Concomitant]
     Indication: Product used for unknown indication
     Dosage: 1 DOSAGE FORMS
     Dates: start: 20221227
  3. SANDIMMUN NEORAL 50 mg CAPSULAS BLANDAS, 30 c?psulas [Concomitant]
     Indication: Product used for unknown indication
     Dates: start: 20221027
  4. LEXXEMA  1mg/ g CREMA , 1 tubo de 60 g [Concomitant]
     Indication: Product used for unknown indication
     Dosage: 1 DOSAGE FORMS
     Dates: start: 20221027
  5. TRALOKINUMAB [Suspect]
     Active Substance: TRALOKINUMAB
     Indication: Dermatitis atopic
     Dosage: ADTRALZA 150 MG  SOLUCION INYECTABLE EN JERINGA PRECARGADA, 4 JERINGAS PRECARGADAS DE 1 ML
     Dates: start: 20221125, end: 20230203
  6. SANDIMMUN NEORAL 100 mg CAPSULAS BLANDAS , 30 c?psulas [Concomitant]
     Indication: Product used for unknown indication
     Dates: start: 20221027
  7. DEVICE [Suspect]
     Active Substance: DEVICE
     Indication: Dermatitis atopic

REACTIONS (4)
  - Alopecia [Recovering/Resolving]
  - Alopecia [Recovering/Resolving]
  - Pruritus [Recovered/Resolved]
  - Pruritus [Recovered/Resolved]

NARRATIVE: CASE EVENT DATE: 20230106
